FAERS Safety Report 7021195-X (Version None)
Quarter: 2010Q3

REPORT INFORMATION
  Report Type: 
  Country: None (occurrence: None)
  Receive Date: 20100929
  Receipt Date: 20100916
  Transmission Date: 20110219
  Serious: No
  Sender: FDA-Public Use
  Company Number: US-BAYER-201033900NA

PATIENT
  Age: 46 Year
  Sex: Male
  Weight: 147 kg

DRUGS (1)
  1. MAGNEVIST [Suspect]
     Indication: NUCLEAR MAGNETIC RESONANCE IMAGING BRAIN
     Dosage: TOTAL DAILY DOSE: 10 ML  UNIT DOSE: 100 ML
     Route: 042
     Dates: start: 20100916, end: 20100916

REACTIONS (2)
  - NAUSEA [None]
  - VOMITING [None]
